FAERS Safety Report 9528297 (Version 3)
Quarter: 2013Q4

REPORT INFORMATION
  Report Type: Spontaneous
  Country: US (occurrence: US)
  Receive Date: 20130917
  Receipt Date: 20131010
  Transmission Date: 20140711
  Serious: Yes (Other)
  Sender: FDA-Public Use
  Company Number: US-PFIZER INC-2013266156

PATIENT
  Sex: Female

DRUGS (3)
  1. IBUPROFEN [Suspect]
     Indication: ARTHRITIS
     Dosage: UNK
  2. ASPIRIN [Suspect]
     Dosage: UNK
  3. COUMADIN [Suspect]
     Dosage: UNK

REACTIONS (2)
  - Haemorrhage [Unknown]
  - Haematochezia [Unknown]
